FAERS Safety Report 18737557 (Version 2)
Quarter: 2021Q1

REPORT INFORMATION
  Report Type: Spontaneous
  Country: US (occurrence: US)
  Receive Date: 20210113
  Receipt Date: 20210118
  Transmission Date: 20210419
  Serious: No
  Sender: FDA-Public Use
  Company Number: US-THERATECHNOLOGIES EUROPE LIMITED-2021-THE-IBA-000002

PATIENT
  Age: 60 Year
  Sex: Male

DRUGS (4)
  1. BICTEGRAVIR;EMTRICITABINE;TENOFOVIR ALAFENAMI [Concomitant]
     Active Substance: BICTEGRAVIR\EMTRICITABINE\TENOFOVIR ALAFENAMIDE
     Indication: HIV INFECTION
     Dosage: UNK
     Dates: start: 202008, end: 20201231
  2. PREZCOBIX [Concomitant]
     Active Substance: COBICISTAT\DARUNAVIR ETHANOLATE
     Indication: HIV INFECTION
     Dosage: UNK
     Dates: start: 202008
  3. TROGARZO [Suspect]
     Active Substance: IBALIZUMAB-UIYK
     Indication: HIV INFECTION
     Dosage: UNK
     Dates: start: 20200512
  4. FOSTEMSAVIR [Concomitant]
     Active Substance: FOSTEMSAVIR
     Indication: HIV INFECTION
     Dosage: UNK
     Dates: start: 202008

REACTIONS (1)
  - Viral load increased [Recovering/Resolving]

NARRATIVE: CASE EVENT DATE: 202012
